FAERS Safety Report 21941780 (Version 2)
Quarter: 2023Q4

REPORT INFORMATION
  Report Type: Spontaneous
  Country: US (occurrence: US)
  Receive Date: 20230202
  Receipt Date: 20231205
  Transmission Date: 20240110
  Serious: Yes (Other)
  Sender: FDA-Public Use
  Company Number: US-CELLTRION INC.-2023US002058

PATIENT

DRUGS (1)
  1. TRUXIMA [Suspect]
     Active Substance: RITUXIMAB-ABBS
     Indication: Haemolytic anaemia
     Dosage: 780 MG IV Q WEEK FOR 4 WEEKS
     Route: 042
     Dates: start: 20221101

REACTIONS (2)
  - Haemolytic anaemia [Unknown]
  - Off label use [Unknown]
